FAERS Safety Report 11720272 (Version 4)
Quarter: 2016Q1

REPORT INFORMATION
  Report Type: Report from Study
  Country: AU (occurrence: AU)
  Receive Date: 20151110
  Receipt Date: 20160310
  Transmission Date: 20160525
  Serious: Yes (Hospitalization, Other)
  Sender: FDA-Public Use
  Company Number: AU-ABBVIE-15P-008-1491064-00

PATIENT
  Age: 63 Year
  Sex: Male
  Weight: 96 kg

DRUGS (14)
  1. RIBAVIRIN. [Suspect]
     Active Substance: RIBAVIRIN
     Indication: HEPATITIS C
     Dosage: X3X200MG BD
     Route: 048
     Dates: start: 20151020
  2. RIBAVIRIN. [Suspect]
     Active Substance: RIBAVIRIN
     Dosage: X2 X 200MG MANE AND X1 X 200MG NOCTE
     Route: 048
  3. RIBAVIRIN. [Suspect]
     Active Substance: RIBAVIRIN
     Dosage: X3 X 200MG BD
     Route: 048
  4. JANUMET [Concomitant]
     Active Substance: METFORMIN HYDROCHLORIDE\SITAGLIPTIN PHOSPHATE
     Indication: PRODUCT USED FOR UNKNOWN INDICATION
     Dosage: NOCTE
  5. MIZART [Concomitant]
     Active Substance: TELMISARTAN
     Indication: PRODUCT USED FOR UNKNOWN INDICATION
     Dosage: NOCTE
  6. MINAX [Concomitant]
     Active Substance: METAMIZOLE
     Indication: PRODUCT USED FOR UNKNOWN INDICATION
     Dosage: NOCTE
  7. CAVSTAT [Concomitant]
     Indication: PRODUCT USED FOR UNKNOWN INDICATION
     Dosage: NOCTE
  8. VIEKIRA PAK [Suspect]
     Active Substance: DASABUVIR\OMBITASVIR\PARITAPREVIR\RITONAVIR
     Dosage: AV1X2 MANE,AV2X1 BD RIBA:2X200MG BD
     Route: 048
  9. STILNOX [Concomitant]
     Active Substance: ZOLPIDEM TARTRATE
     Indication: PRODUCT USED FOR UNKNOWN INDICATION
     Dosage: NOCTE
  10. RIBAVIRIN. [Suspect]
     Active Substance: RIBAVIRIN
     Dosage: 2X 200 MG BD
     Route: 048
  11. ASPIRIN. [Concomitant]
     Active Substance: ASPIRIN
     Indication: PRODUCT USED FOR UNKNOWN INDICATION
     Dosage: NOCTE
  12. VIEKIRA PAK [Suspect]
     Active Substance: DASABUVIR\OMBITASVIR\PARITAPREVIR\RITONAVIR
     Indication: HEPATITIS C
     Dosage: AV1X2 MANE,AV2X1 BD
     Route: 048
     Dates: start: 20151020
  13. VIEKIRA PAK [Suspect]
     Active Substance: DASABUVIR\OMBITASVIR\PARITAPREVIR\RITONAVIR
     Dosage: AV1X2 MANE,AV2X1 BD RIBA:X2X200MG MANE/X1X200MG NOCTE
     Route: 048
  14. VIEKIRA PAK [Suspect]
     Active Substance: DASABUVIR\OMBITASVIR\PARITAPREVIR\RITONAVIR
     Dosage: AV1X2 MANE,AV2X1 BD RIBA:X3X200MG BD
     Route: 048

REACTIONS (5)
  - Muscle spasms [Recovered/Resolved]
  - Dyspnoea [Recovering/Resolving]
  - Dermal cyst [Recovering/Resolving]
  - Haemoglobin decreased [Recovering/Resolving]
  - Blood magnesium decreased [Recovered/Resolved]

NARRATIVE: CASE EVENT DATE: 20151022
